FAERS Safety Report 18821854 (Version 1)
Quarter: 2021Q1

REPORT INFORMATION
  Report Type: Spontaneous
  Country: NO (occurrence: NO)
  Receive Date: 20210202
  Receipt Date: 20210202
  Transmission Date: 20210419
  Serious: Yes (Life-Threatening, Hospitalization)
  Sender: FDA-Public Use
  Company Number: NO-ASTRAZENECA-2021A021335

PATIENT
  Age: 51 Year
  Sex: Female

DRUGS (10)
  1. FORXIGA [Suspect]
     Active Substance: DAPAGLIFLOZIN
     Indication: TYPE 2 DIABETES MELLITUS
     Dosage: DOSE HAD BEEN INCREASED IN NOVEMBER 2020
     Route: 048
  2. DEPO?PROVERA [Concomitant]
     Active Substance: MEDROXYPROGESTERONE ACETATE
     Dosage: 1.0DF UNKNOWN
  3. DIVIFARM [Concomitant]
  4. CERAZETTE [Concomitant]
  5. METFORMIN ORIFARM [Concomitant]
     Indication: TYPE 2 DIABETES MELLITUS
     Dosage: DOSE HAD BEEN INCREASED IN NOVEMBER 2020
     Route: 048
     Dates: start: 20180223
  6. VICTOZA [Concomitant]
     Active Substance: LIRAGLUTIDE
     Indication: TYPE 2 DIABETES MELLITUS
     Route: 058
     Dates: start: 20180222
  7. TRUXAL [Concomitant]
     Active Substance: CHLORPROTHIXENE
     Indication: SCHIZOAFFECTIVE DISORDER
     Dosage: 15.0MG UNKNOWN
     Route: 048
  8. FORXIGA [Suspect]
     Active Substance: DAPAGLIFLOZIN
     Indication: TYPE 2 DIABETES MELLITUS
     Route: 048
     Dates: start: 20191018, end: 20210106
  9. CETIRIZIN MYLAN [Concomitant]
     Indication: HYPERSENSITIVITY
     Route: 048
     Dates: start: 20200415
  10. CLOZAPINE ACTAVIS [Concomitant]
     Active Substance: CLOZAPINE
     Indication: SCHIZOAFFECTIVE DISORDER
     Dosage: 50 MG + 300 MG
     Route: 048
     Dates: start: 2017

REACTIONS (1)
  - Diabetic ketoacidosis [Recovered/Resolved]

NARRATIVE: CASE EVENT DATE: 20201228
